FAERS Safety Report 9230463 (Version 1)
Quarter: 2013Q2

REPORT INFORMATION
  Report Type: Spontaneous
  Country: US (occurrence: US)
  Receive Date: 20130415
  Receipt Date: 20130415
  Transmission Date: 20140414
  Serious: Yes (Hospitalization, Other)
  Sender: FDA-Public Use
  Company Number: US-PFIZER INC-2013113875

PATIENT
  Age: 55 Year
  Sex: Female
  Weight: 74.83 kg

DRUGS (4)
  1. EFFEXOR XR [Suspect]
     Indication: DEPRESSION
     Dosage: 225 MG, 1X/DAY
     Route: 048
  2. EFFEXOR XR [Suspect]
     Dosage: 225 MG, 1X/DAY
     Dates: start: 2010
  3. KLONOPIN [Concomitant]
     Indication: ANXIETY
     Dosage: UNK, AS NEEDED
  4. MIRAPEX [Concomitant]
     Indication: RESTLESS LEGS SYNDROME
     Dosage: UNK

REACTIONS (6)
  - Pulmonary embolism [Unknown]
  - Lung infection [Unknown]
  - Back disorder [Unknown]
  - Depression [Unknown]
  - Activities of daily living impaired [Unknown]
  - Headache [Unknown]
